FAERS Safety Report 7830497-6 (Version None)
Quarter: 2011Q4

REPORT INFORMATION
  Report Type: 
  Country: None (occurrence: None)
  Receive Date: 20111021
  Receipt Date: 20111019
  Transmission Date: 20120403
  Serious: Yes (Other)
  Sender: FDA-Public Use
  Company Number: AU-PFIZER INC-2011252550

PATIENT
  Age: 21 Year
  Sex: Male

DRUGS (1)
  1. VARENICLINE TARTRATE [Suspect]

REACTIONS (3)
  - VIRAL INFECTION [None]
  - COLD SWEAT [None]
  - TOOTHACHE [None]
